FAERS Safety Report 22655304 (Version 1)
Quarter: 2023Q2

REPORT INFORMATION
  Report Type: Spontaneous
  Country: IT (occurrence: IT)
  Receive Date: 20230629
  Receipt Date: 20230629
  Transmission Date: 20230721
  Serious: Yes (Other)
  Sender: FDA-Public Use
  Company Number: IT-JNJFOC-20230615071

PATIENT
  Age: 19 Year
  Sex: Female
  Weight: 87 kg

DRUGS (9)
  1. XANAX [Suspect]
     Active Substance: ALPRAZOLAM
     Indication: Product used for unknown indication
     Dosage: 30 DOSAGE FORM
     Route: 065
     Dates: start: 20230602
  2. ACTIFED (PSEUDOEPHEDRINE HYDROCHLORIDE\TRIPROLIDINE HYDROCHLORIDE) [Suspect]
     Active Substance: PSEUDOEPHEDRINE HYDROCHLORIDE\TRIPROLIDINE HYDROCHLORIDE
     Indication: Product used for unknown indication
     Dosage: APPLIED LIBERALLY,
     Route: 065
     Dates: start: 20230602
  3. BUTYLSCOPOLAMINE BROMIDE [Suspect]
     Active Substance: BUTYLSCOPOLAMINE BROMIDE
     Indication: Product used for unknown indication
     Dosage: 3 TABLETS OF BUSCOPAN 30 COATED TABLETS 10 MG
     Route: 065
     Dates: start: 20230602
  4. CLOPERASTINE [Suspect]
     Active Substance: CLOPERASTINE
     Indication: Product used for unknown indication
     Dosage: UNKNOWN QUANTITY OF SEKI 20 COATED TABLETS
     Route: 065
  5. IBUPROFEN [Suspect]
     Active Substance: IBUPROFEN
     Indication: Product used for unknown indication
     Dosage: 3 TABLETS OF BUSCOFENACT 400 MG 12 SOFT CAPSULES
     Route: 065
     Dates: start: 20230602
  6. IBUPROFEN [Suspect]
     Active Substance: IBUPROFEN
     Indication: Product used for unknown indication
     Dosage: MOMENTACT 12 400 MG COATED TABLETS
     Route: 065
     Dates: start: 20230602
  7. LEVOSULPIRIDE [Suspect]
     Active Substance: LEVOSULPIRIDE
     Indication: Product used for unknown indication
     Dosage: 1 TABLET OF LEVOPRAID 20 TABLETS 25 MG
     Route: 065
     Dates: start: 20230602
  8. ACETAMINOPHEN [Suspect]
     Active Substance: ACETAMINOPHEN
     Indication: Product used for unknown indication
     Dosage: 12 EFFERVESCENT TABLETS
     Route: 065
     Dates: start: 20230602
  9. LATUDA [Suspect]
     Active Substance: LURASIDONE HYDROCHLORIDE
     Indication: Product used for unknown indication
     Dosage: 74 MG 28X1 FILM-COATED TABLETS
     Route: 065
     Dates: start: 20230602

REACTIONS (1)
  - Intentional self-injury [Unknown]

NARRATIVE: CASE EVENT DATE: 20230602
